FAERS Safety Report 15916804 (Version 1)
Quarter: 2019Q1

REPORT INFORMATION
  Report Type: Spontaneous
  Country: US (occurrence: US)
  Receive Date: 20190115
  Receipt Date: 20190115
  Transmission Date: 20190417
  Serious: Yes (Disabling)
  Sender: FDA-Public Use
  Company Number: None

PATIENT
  Age: 74 Year
  Sex: Female
  Weight: 90.72 kg

DRUGS (9)
  1. HCL [Concomitant]
  2. PRAVASTATIN. [Concomitant]
     Active Substance: PRAVASTATIN
  3. VALSARTAN. [Suspect]
     Active Substance: VALSARTAN
     Indication: HYPERTENSION
     Dosage: ?          QUANTITY:320 MG MILLIGRAM(S);?
     Route: 048
     Dates: start: 2012, end: 201807
  4. DIOVAN [Concomitant]
     Active Substance: VALSARTAN
  5. COQ10 [Concomitant]
     Active Substance: UBIDECARENONE
  6. VITAMIN D3 [Concomitant]
     Active Substance: CHOLECALCIFEROL
  7. VITAMIN B12 [Concomitant]
     Active Substance: CYANOCOBALAMIN
  8. OMEGA 3^S [Concomitant]
  9. AREDS [Concomitant]
     Active Substance: MINERALS\VITAMINS

REACTIONS (4)
  - Abdominal pain upper [None]
  - Myalgia [None]
  - Headache [None]
  - Recalled product administered [None]
